FAERS Safety Report 12061990 (Version 1)
Quarter: 2016Q1

REPORT INFORMATION
  Report Type: Spontaneous
  Country: US (occurrence: US)
  Receive Date: 20160210
  Receipt Date: 20160210
  Transmission Date: 20160526
  Serious: No
  Sender: FDA-Public Use
  Company Number: US-ASTRAZENECA-2016SE10869

PATIENT
  Age: 57 Year
  Sex: Female
  Weight: 55.8 kg

DRUGS (3)
  1. BYDUREON [Suspect]
     Active Substance: EXENATIDE
     Indication: TYPE 2 DIABETES MELLITUS
     Route: 058
  2. METFORMIN [Concomitant]
     Active Substance: METFORMIN HYDROCHLORIDE
  3. REPAGLINIDE. [Concomitant]
     Active Substance: REPAGLINIDE

REACTIONS (4)
  - Underdose [Unknown]
  - Product quality issue [Unknown]
  - Injection site injury [Unknown]
  - Injection site pain [Unknown]
